FAERS Safety Report 11592389 (Version 1)
Quarter: 2015Q4

REPORT INFORMATION
  Report Type: Spontaneous
  Country: US (occurrence: None)
  Receive Date: 20151001
  Receipt Date: 20151001
  Transmission Date: 20160304
  Serious: Yes (Hospitalization)
  Sender: FDA-Public Use
  Company Number: US-2015-3868

PATIENT
  Age: 7 Month
  Sex: Female
  Weight: 6.1 kg

DRUGS (1)
  1. PROPRANOLOL INN (PROPRANOLOL HYDROCHLORIDE) UNKNOWN [Suspect]
     Active Substance: PROPRANOLOL HYDROCHLORIDE
     Indication: HAEMANGIOMA
     Route: 048

REACTIONS (5)
  - Hypoglycaemia [None]
  - Somnolence [None]
  - Accidental overdose [None]
  - Lethargy [None]
  - Peripheral coldness [None]
